FAERS Safety Report 12411440 (Version 1)
Quarter: 2016Q2

REPORT INFORMATION
  Report Type: Report from Study
  Country: IN (occurrence: IN)
  Receive Date: 20160527
  Receipt Date: 20160527
  Transmission Date: 20160815
  Serious: Yes (Death)
  Sender: FDA-Public Use
  Company Number: PHHY2016IN072605

PATIENT
  Age: 88 Year
  Sex: Male
  Weight: 55 kg

DRUGS (2)
  1. SEQUADRA INHALER [Suspect]
     Active Substance: GLYCOPYRRONIUM\INDACATEROL
     Indication: CHRONIC OBSTRUCTIVE PULMONARY DISEASE
     Dosage: 1 DF (50 UG OF GLYCOPYRRONIUM AND 110 UG OF INDACATEROL), UNK
     Route: 055
     Dates: start: 20160517
  2. BRO-ZEDEX /03510101/ [Suspect]
     Active Substance: BROMHEXINE HYDROCHLORIDE\GUAIFENESIN\TERBUTALINE SULFATE
     Indication: CHRONIC OBSTRUCTIVE PULMONARY DISEASE
     Dosage: 5 ML, UNK
     Route: 048
     Dates: start: 20160511

REACTIONS (5)
  - Decreased appetite [Fatal]
  - Hyperhidrosis [Fatal]
  - Dyspnoea [Fatal]
  - Wheezing [Fatal]
  - Heart rate decreased [Fatal]

NARRATIVE: CASE EVENT DATE: 20160517
